FAERS Safety Report 19746015 (Version 2)
Quarter: 2022Q1

REPORT INFORMATION
  Report Type: Spontaneous
  Country: US (occurrence: None)
  Receive Date: 20210825
  Receipt Date: 20220330
  Transmission Date: 20220423
  Serious: Yes (Other)
  Sender: FDA-Public Use
  Company Number: 2021A687696

PATIENT
  Age: 69 Year
  Sex: Female
  Weight: 68.9 kg

DRUGS (48)
  1. PRILOSEC [Suspect]
     Active Substance: OMEPRAZOLE MAGNESIUM
     Indication: Gastrooesophageal reflux disease
     Dosage: FOR VARIOUS DATES AND YEARS
     Route: 048
  2. PRILOSEC [Suspect]
     Active Substance: OMEPRAZOLE MAGNESIUM
     Indication: Gastrooesophageal reflux disease
     Route: 048
     Dates: start: 2000, end: 2017
  3. PRILOSEC [Suspect]
     Active Substance: OMEPRAZOLE MAGNESIUM
     Indication: Gastrooesophageal reflux disease
     Route: 065
  4. PREVACID [Suspect]
     Active Substance: LANSOPRAZOLE
     Indication: Gastrooesophageal reflux disease
     Dosage: FOR VARIOUS DATES AND YEARS
     Route: 065
  5. PREVACID [Suspect]
     Active Substance: LANSOPRAZOLE
     Indication: Gastrooesophageal reflux disease
     Route: 065
     Dates: start: 2000
  6. PROTONIX [Suspect]
     Active Substance: PANTOPRAZOLE SODIUM
     Indication: Gastrooesophageal reflux disease
     Dosage: FOR VARIOUS DATES AND YEARS
     Route: 065
  7. PROTONIX [Suspect]
     Active Substance: PANTOPRAZOLE SODIUM
     Indication: Gastrooesophageal reflux disease
     Route: 065
     Dates: start: 2001
  8. ACIPHEX [Suspect]
     Active Substance: RABEPRAZOLE SODIUM
     Route: 065
     Dates: start: 2001, end: 2005
  9. HYDROCHLOROTHIAZIDE [Concomitant]
     Active Substance: HYDROCHLOROTHIAZIDE
     Indication: Diuretic therapy
     Dates: start: 2000, end: 2009
  10. HYDROCHLOROTHIAZIDE [Concomitant]
     Active Substance: HYDROCHLOROTHIAZIDE
     Indication: Diuretic therapy
     Dates: start: 2013, end: 2015
  11. TRIAMTERENE [Concomitant]
     Active Substance: TRIAMTERENE
     Indication: Diuretic therapy
     Dates: start: 2000, end: 2009
  12. VIOXX [Concomitant]
     Active Substance: ROFECOXIB
     Indication: Arthritis
     Dates: start: 2000
  13. PROZAC [Concomitant]
     Active Substance: FLUOXETINE HYDROCHLORIDE
     Indication: Depression
     Dates: start: 2000, end: 2002
  14. FLUOXETINE [Concomitant]
     Active Substance: FLUOXETINE HYDROCHLORIDE
     Indication: Depression
     Dates: start: 2002, end: 2004
  15. PIROXICAM [Concomitant]
     Active Substance: PIROXICAM
     Indication: Pain
     Dates: start: 2003, end: 2004
  16. TRAMADOL [Concomitant]
     Active Substance: TRAMADOL
     Indication: Pain
     Dates: start: 2005
  17. LIPITOR [Concomitant]
     Active Substance: ATORVASTATIN CALCIUM
     Indication: Blood cholesterol increased
     Dates: start: 2007
  18. LIPITOR [Concomitant]
     Active Substance: ATORVASTATIN CALCIUM
     Indication: Blood triglycerides
     Dates: start: 2007
  19. TETRACYCLINE/DIPHENHYDRAMINE HYDROCHLORIDE/NYSTATIN/CHLORPHENAMINE/2-D [Concomitant]
     Indication: Antibiotic therapy
     Dates: start: 2007
  20. AZITHROMYCIN [Concomitant]
     Active Substance: AZITHROMYCIN
     Indication: Antibiotic therapy
     Dates: start: 2008, end: 2009
  21. SIMVASTATIN [Concomitant]
     Active Substance: SIMVASTATIN
     Indication: Blood cholesterol increased
     Dates: start: 2012, end: 2015
  22. SIMVASTATIN [Concomitant]
     Active Substance: SIMVASTATIN
     Indication: Blood triglycerides
     Dates: start: 2012, end: 2015
  23. AMOXICILLIN [Concomitant]
     Active Substance: AMOXICILLIN
     Indication: Antibiotic therapy
     Dates: start: 2015
  24. LOSARTAN [Concomitant]
     Active Substance: LOSARTAN
     Indication: Hypertension
     Dates: start: 2013, end: 2015
  25. CIPROFLOXACIN [Concomitant]
     Active Substance: CIPROFLOXACIN
     Indication: Antibiotic therapy
     Dates: start: 2013, end: 2015
  26. CAPTOPRIL [Concomitant]
     Active Substance: CAPTOPRIL
     Indication: Hypertension
     Dates: start: 2011, end: 2013
  27. LEVOFLOXACIN [Concomitant]
     Active Substance: LEVOFLOXACIN
     Indication: Antibiotic therapy
     Dates: start: 2012
  28. ATORVASTATIN [Concomitant]
     Active Substance: ATORVASTATIN
     Indication: Blood cholesterol increased
     Dates: start: 2015
  29. ATORVASTATIN [Concomitant]
     Active Substance: ATORVASTATIN
     Indication: Blood triglycerides
     Dates: start: 2015
  30. VITAMIN D [Concomitant]
     Active Substance: VITAMIN D NOS
     Indication: Supplementation therapy
  31. IBUPROFEN [Concomitant]
     Active Substance: IBUPROFEN
     Indication: Antibiotic therapy
     Dates: start: 2005
  32. ASPIRIN [Concomitant]
     Active Substance: ASPIRIN
     Indication: Anticoagulant therapy
     Dates: start: 2007
  33. POTASSIUM [Concomitant]
     Active Substance: POTASSIUM
     Indication: Adrenocorticotropic hormone deficiency
     Dates: start: 2008
  34. ACETAMINOPHEN [Concomitant]
     Active Substance: ACETAMINOPHEN
     Indication: Pain
     Dates: start: 2008
  35. RANITIDINE [Concomitant]
     Active Substance: RANITIDINE
     Dates: start: 2010, end: 2017
  36. FAMOTIDINE [Concomitant]
     Active Substance: FAMOTIDINE
     Dates: start: 2017, end: 2021
  37. ROLAIDS [Concomitant]
     Active Substance: CALCIUM CARBONATE\MAGNESIUM HYDROXIDE
  38. MILK OF MAGNESIA [Concomitant]
     Active Substance: MAGNESIUM HYDROXIDE
  39. ALKA-SELTZER [Concomitant]
     Active Substance: ANHYDROUS CITRIC ACID\ASPIRIN\SODIUM BICARBONATE
  40. METOPROLOL [Concomitant]
     Active Substance: METOPROLOL
  41. ZETIA [Concomitant]
     Active Substance: EZETIMIBE
     Dates: start: 20121008
  42. HUMALOG [Concomitant]
     Active Substance: INSULIN LISPRO
     Dates: start: 20121008
  43. PRAZOSIN [Concomitant]
     Active Substance: PRAZOSIN
     Dates: start: 20190528
  44. LORATADINE [Concomitant]
     Active Substance: LORATADINE
     Dates: start: 20100617
  45. MECLIZINE [Concomitant]
     Active Substance: MECLIZINE HYDROCHLORIDE
     Dates: start: 20100724
  46. WARFARIN [Concomitant]
     Active Substance: WARFARIN
     Dates: start: 20100724
  47. BACLOFEN [Concomitant]
     Active Substance: BACLOFEN
     Dates: start: 20100724
  48. GABAPENTIN [Concomitant]
     Active Substance: GABAPENTIN
     Dates: start: 20180414

REACTIONS (6)
  - Acute kidney injury [Not Recovered/Not Resolved]
  - Chronic kidney disease [Not Recovered/Not Resolved]
  - Nephrogenic anaemia [Unknown]
  - Hyperparathyroidism secondary [Unknown]
  - Renal failure [Unknown]
  - Rebound acid hypersecretion [Unknown]

NARRATIVE: CASE EVENT DATE: 20070101
